FAERS Safety Report 9437813 (Version 1)
Quarter: 2013Q3

REPORT INFORMATION
  Report Type: Spontaneous
  Country: US (occurrence: US)
  Receive Date: 20130802
  Receipt Date: 20130802
  Transmission Date: 20140515
  Serious: Yes (Other)
  Sender: FDA-Public Use
  Company Number: US-BRISTOL-MYERS SQUIBB COMPANY-17467895

PATIENT
  Age: 82 Year
  Sex: Female
  Weight: 54.42 kg

DRUGS (2)
  1. COUMADIN [Suspect]
     Indication: ATRIAL FIBRILLATION
  2. CENTRUM SILVER [Suspect]
     Dosage: TAB
     Route: 048
     Dates: end: 20130215

REACTIONS (1)
  - International normalised ratio fluctuation [Unknown]
